FAERS Safety Report 9645907 (Version 2)
Quarter: 2013Q4

REPORT INFORMATION
  Report Type: Spontaneous
  Country: ES (occurrence: ES)
  Receive Date: 20131025
  Receipt Date: 20131025
  Transmission Date: 20140711
  Serious: Yes (Hospitalization, Congenital Anomaly, Other)
  Sender: FDA-Public Use
  Company Number: PHHY2013ES117233

PATIENT
  Sex: Male

DRUGS (1)
  1. VALPROIC ACID [Suspect]
     Route: 064

REACTIONS (14)
  - Foetal anticonvulsant syndrome [Unknown]
  - Microtia [Unknown]
  - Masked facies [Unknown]
  - Hypotonia neonatal [Unknown]
  - Congenital anomalies of ear ossicles [Unknown]
  - Tympanic membrane disorder [Unknown]
  - Ligament laxity [Unknown]
  - Prominent epicanthal folds [Unknown]
  - Congenital anomaly [Unknown]
  - Arachnodactyly [Unknown]
  - External auditory canal atresia [Unknown]
  - Conductive deafness [Recovering/Resolving]
  - Premature baby [Unknown]
  - Foetal exposure during pregnancy [Unknown]
